FAERS Safety Report 16290045 (Version 1)
Quarter: 2019Q2

REPORT INFORMATION
  Report Type: Spontaneous
  Country: US (occurrence: US)
  Receive Date: 20190508
  Receipt Date: 20190508
  Transmission Date: 20190711
  Serious: No
  Sender: FDA-Public Use
  Company Number: None

PATIENT
  Sex: Male

DRUGS (1)
  1. SIMVASTATIN 20 MG [Suspect]
     Active Substance: SIMVASTATIN

REACTIONS (2)
  - Myalgia [None]
  - Pain in extremity [None]
